FAERS Safety Report 9851783 (Version 1)
Quarter: 2014Q1

REPORT INFORMATION
  Report Type: Spontaneous
  Country: ID (occurrence: ID)
  Receive Date: 20140129
  Receipt Date: 20140129
  Transmission Date: 20141002
  Serious: Yes (Other)
  Sender: FDA-Public Use
  Company Number: ID-ROCHE-1340608

PATIENT
  Sex: Male

DRUGS (1)
  1. XELODA [Suspect]
     Indication: PROSTATE CANCER
     Route: 065
     Dates: start: 20140121

REACTIONS (2)
  - Off label use [Unknown]
  - Prostate cancer metastatic [Unknown]
